FAERS Safety Report 6389890-3 (Version None)
Quarter: 2009Q4

REPORT INFORMATION
  Report Type: 
  Country: None (occurrence: None)
  Receive Date: 20091006
  Receipt Date: 20090216
  Transmission Date: 20100525
  Serious: No
  Sender: FDA-Public Use
  Company Number: US-BRISTOL-MYERS SQUIBB COMPANY-14514459

PATIENT
  Age: 83 Year
  Sex: Female

DRUGS (2)
  1. AVAPRO [Suspect]
     Indication: HYPERTENSION
     Dosage: STARTED 5 YEARS AGO ONGOING
  2. CRESTOR [Suspect]
     Indication: BLOOD CHOLESTEROL

REACTIONS (2)
  - OEDEMA PERIPHERAL [None]
  - PRURITUS [None]
